FAERS Safety Report 9186997 (Version 1)
Quarter: 2013Q1

REPORT INFORMATION
  Report Type: Spontaneous
  Country: CA (occurrence: CA)
  Receive Date: 20130325
  Receipt Date: 20130325
  Transmission Date: 20140127
  Serious: Yes (Other)
  Sender: FDA-Public Use
  Company Number: CA-PFIZER INC-2013083526

PATIENT
  Age: 45 Year
  Sex: Male
  Weight: 88 kg

DRUGS (1)
  1. EFFEXOR XR [Suspect]
     Indication: ANXIETY
     Dosage: UNK
     Route: 048
     Dates: start: 2005, end: 200609

REACTIONS (3)
  - Tinnitus [Not Recovered/Not Resolved]
  - Hypoacusis [Not Recovered/Not Resolved]
  - Quality of life decreased [Not Recovered/Not Resolved]
